FAERS Safety Report 5653756-4 (Version None)
Quarter: 2008Q1

REPORT INFORMATION
  Report Type: 
  Country: None (occurrence: None)
  Receive Date: 20080205
  Receipt Date: 20071018
  Transmission Date: 20080703
  Serious: Yes (Hospitalization)
  Sender: FDA-Public Use
  Company Number: 526088

PATIENT
  Age: 54 Year
  Sex: Female
  Weight: 45.4 kg

DRUGS (1)
  1. BONIVA [Suspect]
     Indication: DRUG USE FOR UNKNOWN INDICATION
     Dosage: 3 MG  1 PER 3 MONTH INTRAVENOUS
     Route: 042
     Dates: start: 20070712, end: 20071016

REACTIONS (3)
  - CYANOSIS [None]
  - INJECTION SITE SWELLING [None]
  - PAIN IN EXTREMITY [None]
